FAERS Safety Report 11001826 (Version 2)
Quarter: 2015Q2

REPORT INFORMATION
  Report Type: Spontaneous
  Country: US (occurrence: US)
  Receive Date: 20150408
  Receipt Date: 20150430
  Transmission Date: 20150821
  Serious: Yes (Death)
  Sender: FDA-Public Use
  Company Number: US-UNITED THERAPEUTICS-UNT-2015-003759

PATIENT
  Age: 71 Year
  Sex: Female
  Weight: 88.44 kg

DRUGS (1)
  1. TYVASO [Suspect]
     Active Substance: TREPROSTINIL
     Indication: PULMONARY ARTERIAL HYPERTENSION
     Dosage: 60-72 MCG QID
     Dates: start: 20140122

REACTIONS (1)
  - Death [Fatal]

NARRATIVE: CASE EVENT DATE: 201503
